FAERS Safety Report 5361289-8 (Version None)
Quarter: 2007Q2

REPORT INFORMATION
  Report Type: 
  Country: None (occurrence: None)
  Receive Date: 20070614
  Receipt Date: 20070608
  Transmission Date: 20071010
  Serious: Yes (Other)
  Sender: FDA-Public Use
  Company Number: 2007-02770

PATIENT
  Age: 85 Year
  Sex: Male

DRUGS (1)
  1. TRIAMCINOLONE ACETONIDE [Suspect]
     Indication: MACULAR OEDEMA
     Dosage: 4 MG (0.1 ML), SINGLE, INTRAOCULAR
     Route: 031
     Dates: start: 20060201

REACTIONS (3)
  - DISORDER OF GLOBE [None]
  - EYE PENETRATION [None]
  - UVEAL PROLAPSE [None]
